FAERS Safety Report 7961385-2 (Version None)
Quarter: 2011Q4

REPORT INFORMATION
  Report Type: 
  Country: None (occurrence: None)
  Receive Date: 20111207
  Receipt Date: 20111205
  Transmission Date: 20120403
  Serious: Yes (Hospitalization)
  Sender: FDA-Public Use
  Company Number: US-GENZYME-CAMP-1002031

PATIENT
  Age: 76 Year
  Sex: Male
  Weight: 98.413 kg

DRUGS (1)
  1. CAMPATH [Suspect]
     Indication: CHRONIC LYMPHOCYTIC LEUKAEMIA
     Dosage: 30 MG ON DAYS 1, 3, 5, AND 8 OF CYCLE
     Route: 042
     Dates: start: 20110815, end: 20110926

REACTIONS (2)
  - PAIN [None]
  - LYMPHADENOPATHY [None]
